FAERS Safety Report 5503182-3 (Version None)
Quarter: 2007Q4

REPORT INFORMATION
  Report Type: 
  Country: None (occurrence: None)
  Receive Date: 20071031
  Receipt Date: 20071019
  Transmission Date: 20080405
  Serious: Yes (Hospitalization)
  Sender: FDA-Public Use
  Company Number: US-AMGEN-STX244500

PATIENT
  Sex: Female

DRUGS (8)
  1. ENBREL [Suspect]
     Indication: RHEUMATOID ARTHRITIS
     Route: 058
     Dates: start: 20050901
  2. CELEBREX [Concomitant]
     Route: 065
  3. VITAMIN CAP [Concomitant]
     Route: 065
  4. GLUCOSAMINE W/CHONDROITIN SULFATES [Concomitant]
     Route: 065
  5. CALCIUM WITH VITAMIN D [Concomitant]
     Route: 065
  6. ULTRAM [Concomitant]
     Route: 048
  7. HUMIRA [Concomitant]
     Dates: start: 20061016
  8. PERCOCET [Concomitant]
     Route: 065

REACTIONS (12)
  - DEPRESSED MOOD [None]
  - DRY EYE [None]
  - DRY THROAT [None]
  - DYSPHAGIA [None]
  - FATIGUE [None]
  - INSOMNIA [None]
  - LEUKOCYTOSIS [None]
  - PYREXIA [None]
  - RASH MACULO-PAPULAR [None]
  - RHEUMATOID ARTHRITIS [None]
  - UPPER RESPIRATORY TRACT INFECTION [None]
  - WEIGHT INCREASED [None]
